FAERS Safety Report 23999180 (Version 1)
Quarter: 2024Q2

REPORT INFORMATION
  Report Type: Spontaneous
  Country: US (occurrence: None)
  Receive Date: 20240620
  Receipt Date: 20240620
  Transmission Date: 20240716
  Serious: No
  Sender: FDA-Public Use
  Company Number: None

PATIENT
  Age: 52 Year
  Sex: Female

DRUGS (1)
  1. ENBREL [Suspect]
     Active Substance: BENZYL ALCOHOL\ETANERCEPT
     Indication: Rheumatoid arthritis
     Dosage: OTHER FREQUENCY : 50 MG Q 7 DAYS;?
     Route: 058
     Dates: start: 20240608, end: 20240608

REACTIONS (5)
  - Dyspnoea [None]
  - Peripheral swelling [None]
  - Chest pain [None]
  - Myalgia [None]
  - Constipation [None]

NARRATIVE: CASE EVENT DATE: 20240620
